FAERS Safety Report 24262452 (Version 2)
Quarter: 2024Q4

REPORT INFORMATION
  Report Type: Other
  Country: PA (occurrence: PA)
  Receive Date: 20240829
  Receipt Date: 20241206
  Transmission Date: 20250114
  Serious: Yes (Hospitalization)
  Sender: TOLMAR
  Company Number: PA-TOLMAR, INC.-24PA051675

PATIENT
  Age: 90 Year
  Sex: Male

DRUGS (8)
  1. ELIGARD [Suspect]
     Active Substance: LEUPROLIDE ACETATE
     Indication: Prostate cancer
     Dosage: 45 MILLIGRAM, Q 6 MONTH
     Route: 058
     Dates: start: 20210614
  2. ELIGARD [Suspect]
     Active Substance: LEUPROLIDE ACETATE
     Dosage: 45 MILLIGRAM, Q 6 MONTH
     Route: 058
     Dates: start: 202408
  3. ELIGARD [Suspect]
     Active Substance: LEUPROLIDE ACETATE
     Indication: Prostate cancer
     Dosage: UNK
  4. XTANDI [Suspect]
     Active Substance: ENZALUTAMIDE
     Indication: Prostate cancer
     Dosage: 160 MILLIGRAM, QD
     Route: 048
     Dates: start: 20240610
  5. CEFALMIN [CEFRADINE] [Concomitant]
     Indication: Product used for unknown indication
     Dosage: TAKE 1 IN THE MORNING AND 1 IN THE EVENING
  6. ENALAPRIL [Concomitant]
     Active Substance: ENALAPRIL
     Indication: Hypertension
     Dosage: TAKES 1 IN THE MORNING AND 1 AT NIGHT
  7. NORBAX (adolipin) [Concomitant]
     Indication: Hypertension
     Dosage: TAKES 2 IN THE MORNING
  8. ATORVASTATIN [Concomitant]
     Active Substance: ATORVASTATIN
     Indication: Product used for unknown indication
     Dosage: TAKES 1 IN THE MORNING

REACTIONS (6)
  - Fall [Unknown]
  - Hip fracture [Unknown]
  - Wrist fracture [Unknown]
  - Peripheral swelling [Unknown]
  - Ulcer [Unknown]
  - Dizziness [Not Recovered/Not Resolved]

NARRATIVE: CASE EVENT DATE: 20231101
